FAERS Safety Report 8251828-1 (Version None)
Quarter: 2012Q1

REPORT INFORMATION
  Report Type: 
  Country: None (occurrence: None)
  Receive Date: 20120321
  Receipt Date: 20110623
  Transmission Date: 20120608
  Serious: Yes (Other)
  Sender: FDA-Public Use
  Company Number: 963639

PATIENT
  Age: 10 Year
  Sex: Male

DRUGS (1)
  1. PROPOFOL [Suspect]
     Indication: CONVULSION
     Dosage: UNKNOWN

REACTIONS (1)
  - DRUG INEFFECTIVE [None]
